FAERS Safety Report 6279244-2 (Version None)
Quarter: 2009Q3

REPORT INFORMATION
  Report Type: 
  Country: None (occurrence: None)
  Receive Date: 20090720
  Receipt Date: 20090720
  Transmission Date: 20100115
  Serious: Yes (Other)
  Sender: FDA-Public Use
  Company Number: None

PATIENT
  Age: 78 Year
  Sex: Female
  Weight: 66.6788 kg

DRUGS (1)
  1. CIPROFLOXACIN 400MG PREMIX BAG SAGENT PHARMACEUTICALS [Suspect]
     Indication: DIVERTICULITIS
     Dosage: 400MG Q12H IV DRIP
     Route: 042
     Dates: start: 20090616, end: 20090616

REACTIONS (2)
  - INFUSION SITE PHLEBITIS [None]
  - PRODUCT SUBSTITUTION ISSUE [None]
